FAERS Safety Report 18015700 (Version 1)
Quarter: 2020Q3

REPORT INFORMATION
  Report Type: Spontaneous
  Country: CN (occurrence: CN)
  Receive Date: 20200713
  Receipt Date: 20200713
  Transmission Date: 20201103
  Serious: Yes (Death, Other)
  Sender: FDA-Public Use
  Company Number: CN-ASTRAZENECA-2020SE87932

PATIENT
  Age: 54 Year
  Sex: Male
  Weight: 62 kg

DRUGS (4)
  1. RADIOTHERAPY [Concomitant]
     Active Substance: RADIATION THERAPY
  2. IMFINZI [Suspect]
     Active Substance: DURVALUMAB
     Dosage: 500MG / 10ML
     Route: 042
     Dates: start: 20200527
  3. PLATINUM?BASED CHEMOTHERAPY [Concomitant]
     Active Substance: UNSPECIFIED INGREDIENT
  4. IMFINZI [Suspect]
     Active Substance: DURVALUMAB
     Dosage: 120MG/2.4ML, 620MG / PERIOD
     Route: 042
     Dates: start: 20200610

REACTIONS (2)
  - Death [Fatal]
  - Drug ineffective [Unknown]

NARRATIVE: CASE EVENT DATE: 20200701
